FAERS Safety Report 15751714 (Version 2)
Quarter: 2019Q1

REPORT INFORMATION
  Report Type: Spontaneous
  Country: JP (occurrence: JP)
  Receive Date: 20181221
  Receipt Date: 20190212
  Transmission Date: 20190417
  Serious: Yes (Hospitalization, Other)
  Sender: FDA-Public Use
  Company Number: JP-GLAXOSMITHKLINE-JP2018JPN227920

PATIENT
  Age: 83 Year
  Sex: Female

DRUGS (1)
  1. VALTREX [Suspect]
     Active Substance: VALACYCLOVIR HYDROCHLORIDE
     Indication: GENITAL HERPES
     Dosage: 3000 MG, 1D
     Route: 048

REACTIONS (10)
  - Altered state of consciousness [Recovering/Resolving]
  - Asthenia [Unknown]
  - Dyslalia [Unknown]
  - Acute kidney injury [Recovering/Resolving]
  - Toxic encephalopathy [Unknown]
  - Decreased appetite [Unknown]
  - Product use issue [Unknown]
  - Somnolence [Unknown]
  - Salivary hypersecretion [Unknown]
  - Prescribed overdose [Unknown]
